FAERS Safety Report 25931983 (Version 1)
Quarter: 2025Q4

REPORT INFORMATION
  Report Type: Report from Study
  Country: US (occurrence: US)
  Receive Date: 20251016
  Receipt Date: 20251016
  Transmission Date: 20260117
  Serious: Yes (Other)
  Sender: MALLINCKRODT
  Company Number: US-MALLINCKRODT-MNK202506266

PATIENT
  Sex: Female

DRUGS (4)
  1. CORTICOTROPIN [Suspect]
     Active Substance: CORTICOTROPIN
     Indication: Systemic lupus erythematosus
     Dosage: UNKNOWN
  2. CORTICOTROPIN [Suspect]
     Active Substance: CORTICOTROPIN
     Indication: Rheumatoid arthritis
  3. ELIQUIS [Concomitant]
     Active Substance: APIXABAN
     Indication: Pain
     Dosage: UNKNOWN
  4. FUROSEMIDE [Concomitant]
     Active Substance: FUROSEMIDE
     Indication: Swelling
     Dosage: UNKNOWN

REACTIONS (5)
  - Diabetes mellitus [Unknown]
  - Neuropathy peripheral [Unknown]
  - Fall [Unknown]
  - Chest pain [Unknown]
  - Hyperlipidaemia [Unknown]
